FAERS Safety Report 7606720-X (Version None)
Quarter: 2011Q3

REPORT INFORMATION
  Report Type: 
  Country: None (occurrence: None)
  Receive Date: 20110713
  Receipt Date: 20110708
  Transmission Date: 20111222
  Serious: Yes (Hospitalization)
  Sender: FDA-Public Use
  Company Number: JP-MERCK-1106USA00731

PATIENT
  Age: 74 Year
  Sex: Female

DRUGS (8)
  1. LIPITOR [Concomitant]
     Indication: HYPERCHOLESTEROLAEMIA
     Route: 048
     Dates: start: 20060412
  2. COZAAR [Concomitant]
     Indication: HYPERTENSION
     Route: 048
     Dates: start: 20060412
  3. CELECTOL [Concomitant]
     Indication: HYPERTENSION
     Route: 048
     Dates: start: 20060412
  4. FOSAMAX [Suspect]
     Route: 048
     Dates: start: 20060901, end: 20101101
  5. ADALAT CC [Concomitant]
     Indication: HYPERTENSION
     Route: 048
     Dates: start: 20060412
  6. ASPIRIN [Concomitant]
     Indication: THROMBOSIS PROPHYLAXIS
     Route: 048
     Dates: start: 20060412
  7. TORSEMIDE [Concomitant]
     Indication: OEDEMA
     Route: 048
     Dates: start: 20060412
  8. FOSAMAX [Suspect]
     Indication: OSTEOPOROSIS
     Route: 048
     Dates: start: 20030101, end: 20060901

REACTIONS (1)
  - FEMUR FRACTURE [None]
